FAERS Safety Report 6265241-X (Version None)
Quarter: 2009Q3

REPORT INFORMATION
  Report Type: 
  Country: None (occurrence: None)
  Receive Date: 20090713
  Receipt Date: 20090707
  Transmission Date: 20100115
  Serious: No
  Sender: FDA-Public Use
  Company Number: US-B.I. PHARMACEUTICALS,INC./RIDGEFIELD-2009-BP-06218BP

PATIENT
  Age: 85 Year
  Sex: Female
  Weight: 53.6 kg

DRUGS (2)
  1. COMBIVENT [Suspect]
     Indication: CHRONIC OBSTRUCTIVE PULMONARY DISEASE
     Dosage: 8 PUF
     Route: 055
     Dates: start: 20010101
  2. ADVAIR HFA [Concomitant]
     Dosage: 2 PUF

REACTIONS (3)
  - ASTHENIA [None]
  - DRUG EFFECT DECREASED [None]
  - RESPIRATORY DISORDER [None]
